FAERS Safety Report 5524123-9 (Version None)
Quarter: 2007Q4

REPORT INFORMATION
  Report Type: 
  Country: None (occurrence: None)
  Receive Date: 20071121
  Receipt Date: 20061116
  Transmission Date: 20080405
  Serious: Yes (Hospitalization, Disabling, Other)
  Sender: FDA-Public Use
  Company Number: US-MERCK-0411USA01425

PATIENT
  Age: 77 Year
  Sex: Male
  Weight: 71 kg

DRUGS (23)
  1. ZETIA [Suspect]
     Indication: HYPERCHOLESTEROLAEMIA
     Route: 048
     Dates: start: 20021201, end: 20051201
  2. ZETIA [Suspect]
     Indication: BLOOD CHOLESTEROL INCREASED
     Route: 048
     Dates: start: 20021201, end: 20051201
  3. GLUCOVANCE [Concomitant]
     Route: 065
  4. COZAAR [Concomitant]
     Route: 048
  5. LUMIGAN [Concomitant]
     Route: 065
  6. GLYBURIDE [Concomitant]
     Route: 065
     Dates: start: 19910101
  7. LUPRON DEPOT-3 [Suspect]
     Indication: PROSTATE CANCER
     Route: 030
     Dates: start: 19970701
  8. LUPRON DEPOT-3 [Suspect]
     Route: 030
     Dates: start: 20060101, end: 20060303
  9. FOSAMAX [Concomitant]
     Route: 048
     Dates: start: 20040101
  10. ASPIRIN [Concomitant]
     Indication: CORONARY ARTERY DISEASE
     Route: 065
  11. HERBS (UNSPECIFIED) [Concomitant]
     Indication: BLOOD CHOLESTEROL INCREASED
     Route: 065
  12. VITAMINS (UNSPECIFIED) [Concomitant]
     Route: 065
  13. DOCUSATE SODIUM [Concomitant]
     Route: 065
  14. NAMENDA [Suspect]
     Indication: DEMENTIA
     Route: 048
     Dates: start: 20030101, end: 20030101
  15. NAMENDA [Suspect]
     Route: 048
     Dates: start: 20030101, end: 20030101
  16. NAMENDA [Suspect]
     Route: 065
     Dates: start: 20030101, end: 20030101
  17. NAMENDA [Suspect]
     Route: 065
     Dates: start: 20030101, end: 20060413
  18. NAMENDA [Suspect]
     Route: 065
     Dates: start: 20060613
  19. WELCHOL [Suspect]
     Indication: BLOOD CHOLESTEROL INCREASED
     Route: 048
     Dates: start: 20020101, end: 20021201
  20. LIPITOR [Suspect]
     Indication: BLOOD CHOLESTEROL INCREASED
     Route: 048
     Dates: start: 20000101, end: 20010101
  21. PRAVACHOL [Suspect]
     Indication: BLOOD CHOLESTEROL INCREASED
     Route: 048
     Dates: start: 20010901, end: 20011201
  22. SIL-NORBORAL [Concomitant]
     Route: 048
     Dates: start: 19910101
  23. AMIODARONA [Concomitant]
     Route: 048
     Dates: start: 20050101

REACTIONS (42)
  - AGGRESSION [None]
  - AMNESIA [None]
  - ANOREXIA [None]
  - ARRHYTHMIA [None]
  - ASTHENIA [None]
  - ATRIAL FIBRILLATION [None]
  - BLOOD CHOLESTEROL INCREASED [None]
  - BODY FAT DISORDER [None]
  - BODY HEIGHT DECREASED [None]
  - CARDIAC DISORDER [None]
  - COGNITIVE DISORDER [None]
  - CONFUSIONAL STATE [None]
  - DEMENTIA [None]
  - DISORIENTATION [None]
  - DIZZINESS [None]
  - DRUG INTERACTION [None]
  - DYSARTHRIA [None]
  - FALL [None]
  - FATIGUE [None]
  - GAIT DISTURBANCE [None]
  - HALLUCINATION [None]
  - HEART RATE IRREGULAR [None]
  - HIP FRACTURE [None]
  - IRRITABILITY [None]
  - LOWER LIMB FRACTURE [None]
  - MEMORY IMPAIRMENT [None]
  - MENTAL STATUS CHANGES [None]
  - MUSCULAR WEAKNESS [None]
  - MYALGIA [None]
  - NAUSEA [None]
  - OSTEOARTHRITIS [None]
  - OSTEOPOROSIS [None]
  - PAIN IN EXTREMITY [None]
  - PALPITATIONS [None]
  - RIB FRACTURE [None]
  - SOMNOLENCE [None]
  - SPEECH DISORDER [None]
  - TACHYCARDIA [None]
  - UPPER LIMB FRACTURE [None]
  - URINARY TRACT INFECTION [None]
  - WEIGHT DECREASED [None]
  - WRIST FRACTURE [None]
